FAERS Safety Report 6031324-2 (Version None)
Quarter: 2008Q4

REPORT INFORMATION
  Report Type: 
  Country: None (occurrence: None)
  Receive Date: 20081224
  Receipt Date: 20080910
  Transmission Date: 20090506
  Serious: Yes (Hospitalization)
  Sender: FDA-Public Use
  Company Number: US-CVT-080081

PATIENT
  Age: 87 Year
  Sex: Male

DRUGS (8)
  1. RANEXA [Suspect]
     Indication: ANGINA PECTORIS
     Dosage: 500 MG, BID, ORAL ; 500 MG, BID, ORAL
     Route: 048
     Dates: start: 20080807, end: 20080825
  2. RANEXA [Suspect]
     Indication: ANGINA PECTORIS
     Dosage: 500 MG, BID, ORAL ; 500 MG, BID, ORAL
     Route: 048
     Dates: start: 20080826, end: 20080830
  3. PRILOSEC [Suspect]
     Dosage: 20 MG, QD, ORAL
     Route: 048
     Dates: start: 20080807, end: 20080826
  4. ATENOLOL [Concomitant]
  5. CLOPIDOGREL /01220701/ (CLOPIDOGREL) [Concomitant]
  6. ASPIRIN /00002701/ (ACETYLSALICYLC ACID) [Concomitant]
  7. SIMVASTATIN [Concomitant]
  8. NITROGLYCERIN [Concomitant]

REACTIONS (2)
  - MYOCARDIAL INFARCTION [None]
  - RASH GENERALISED [None]
